FAERS Safety Report 9194225 (Version 1)
Quarter: 2013Q1

REPORT INFORMATION
  Report Type: Spontaneous
  Country: US (occurrence: US)
  Receive Date: 20130327
  Receipt Date: 20130327
  Transmission Date: 20140127
  Serious: No
  Sender: FDA-Public Use
  Company Number: US-ASTRAZENECA-2013SE16068

PATIENT
  Age: 71 Year
  Sex: Male
  Weight: 95.3 kg

DRUGS (8)
  1. SYMBICORT [Suspect]
     Indication: CHRONIC OBSTRUCTIVE PULMONARY DISEASE
     Dosage: 320 MCG BID
     Route: 055
     Dates: start: 20130210
  2. SYMBICORT [Suspect]
     Indication: CHRONIC OBSTRUCTIVE PULMONARY DISEASE
     Dosage: 160/4.5 MCG BID
     Route: 055
     Dates: start: 20130210
  3. CRESTOR [Suspect]
     Route: 048
  4. DIOVAN [Concomitant]
  5. BYSTOLIC [Concomitant]
  6. AMLODIPINE [Concomitant]
  7. PLAVIX [Concomitant]
  8. LORAZAPAM [Concomitant]

REACTIONS (1)
  - Dysphonia [Not Recovered/Not Resolved]
